FAERS Safety Report 6420006-0 (Version None)
Quarter: 2009Q4

REPORT INFORMATION
  Report Type: 
  Country: None (occurrence: None)
  Receive Date: 20091029
  Receipt Date: 20091020
  Transmission Date: 20100525
  Serious: Yes (Other)
  Sender: FDA-Public Use
  Company Number: US-RB-022680-09

PATIENT
  Age: 27 Year
  Sex: Female

DRUGS (2)
  1. SUBOXONE [Suspect]
     Dosage: TAKES 4 MG FOUR TIMES DAILY
     Route: 060
     Dates: start: 20091017
  2. BUSPIRONE HCL [Concomitant]
     Indication: ANXIETY
     Dosage: DOSING INFORMATION UNKNOWN
     Route: 048

REACTIONS (5)
  - CHANGE IN SUSTAINED ATTENTION [None]
  - DROOLING [None]
  - DRY MOUTH [None]
  - HALLUCINATION [None]
  - SOMNOLENCE [None]
